FAERS Safety Report 14190251 (Version 2)
Quarter: 2017Q4

REPORT INFORMATION
  Report Type: Report from Study
  Country: US (occurrence: US)
  Receive Date: 20171115
  Receipt Date: 20171128
  Transmission Date: 20180321
  Serious: Yes (Hospitalization, Other)
  Sender: FDA-Public Use
  Company Number: US-BAYER-2017-214548

PATIENT
  Age: 68 Year
  Sex: Male

DRUGS (1)
  1. STIVARGA [Suspect]
     Active Substance: REGORAFENIB
     Indication: COLORECTAL CANCER METASTATIC
     Dosage: 120 MG, QD, 4 WEEKS ON AND 2 WEEKS OFF
     Route: 048
     Dates: start: 20171101, end: 20171103

REACTIONS (11)
  - Pyrexia [Recovered/Resolved]
  - Pyrexia [None]
  - Blister [Not Recovered/Not Resolved]
  - Diarrhoea [Not Recovered/Not Resolved]
  - Drug dose omission [None]
  - Confusional state [Not Recovered/Not Resolved]
  - Urinary retention [Not Recovered/Not Resolved]
  - Dyspnoea [Not Recovered/Not Resolved]
  - Impaired self-care [None]
  - Off label use [None]
  - Decreased activity [None]

NARRATIVE: CASE EVENT DATE: 201711
